FAERS Safety Report 18411427 (Version 2)
Quarter: 2020Q4

REPORT INFORMATION
  Report Type: Spontaneous
  Country: US (occurrence: US)
  Receive Date: 20201021
  Receipt Date: 20201021
  Transmission Date: 20210114
  Serious: No
  Sender: FDA-Public Use
  Company Number: US-PFIZER INC-2020405409

PATIENT
  Sex: Female

DRUGS (4)
  1. DIMETAPP [Suspect]
     Active Substance: BROMPHENIRAMINE\PSEUDOEPHEDRINE
     Dosage: UNK
  2. AMLODIPINE BESILATE [Suspect]
     Active Substance: AMLODIPINE BESYLATE
     Dosage: UNK
  3. DEMEROL [Suspect]
     Active Substance: MEPERIDINE HYDROCHLORIDE
     Dosage: UNK
  4. DAYPRO [Suspect]
     Active Substance: OXAPROZIN
     Dosage: UNK

REACTIONS (1)
  - Drug hypersensitivity [Unknown]
